FAERS Safety Report 7817153-5 (Version None)
Quarter: 2011Q4

REPORT INFORMATION
  Report Type: 
  Country: None (occurrence: None)
  Receive Date: 20111017
  Receipt Date: 20111017
  Transmission Date: 20120403
  Serious: Yes (Other)
  Sender: FDA-Public Use
  Company Number: None

PATIENT
  Age: 84 Year
  Sex: Female
  Weight: 69.399 kg

DRUGS (12)
  1. FUROSEMIDE [Concomitant]
  2. MIRALAX [Concomitant]
  3. SIMVASTATIN [Concomitant]
  4. INSULIN [Concomitant]
  5. NIFEDIPINE [Concomitant]
     Route: 048
  6. CLONIDINE [Concomitant]
     Route: 048
  7. ASPIRIN [Concomitant]
     Route: 048
  8. GABAPENTIN [Concomitant]
  9. MORPHINE [Concomitant]
  10. NITROSTAT [Concomitant]
     Route: 060
  11. SAVELLA [Suspect]
     Indication: NEUROPATHY PERIPHERAL
     Dosage: 50 MG
     Route: 048
  12. BENAZEPRIL HYDROCHLORIDE [Concomitant]
     Route: 048

REACTIONS (1)
  - HEPATIC ENZYME INCREASED [None]
